FAERS Safety Report 17793849 (Version 1)
Quarter: 2020Q2

REPORT INFORMATION
  Report Type: Spontaneous
  Country: US (occurrence: US)
  Receive Date: 20200515
  Receipt Date: 20200515
  Transmission Date: 20200714
  Serious: Yes (Hospitalization, Other)
  Sender: FDA-Public Use
  Company Number: US-SAOL THERAPEUTICS-2020SAO00116

PATIENT
  Age: 56 Year
  Sex: Male
  Weight: 80.82 kg

DRUGS (38)
  1. SENNA [Concomitant]
     Active Substance: SENNA LEAF\SENNOSIDES\SENNOSIDES A AND B
     Dosage: 17.2 MG, 1X/DAY
     Route: 048
  2. MEPERIDINE [Concomitant]
     Active Substance: MEPERIDINE
     Dosage: 50 MG, UP TO 1X/DAY
     Route: 048
  3. ASPIRIN. [Concomitant]
     Active Substance: ASPIRIN
     Dosage: 325 MG, ONCE
     Route: 048
  4. LIORESAL [Suspect]
     Active Substance: BACLOFEN
     Indication: MUSCLE SPASMS
  5. MULTIVITS WITH MINERALS [Concomitant]
     Dosage: 1 DOSAGE UNITS, 1X/DAY
     Route: 048
  6. HYDROGEN PEROXIDE. [Concomitant]
     Active Substance: HYDROGEN PEROXIDE
     Dosage: 1 DOSAGE UNITS, UP TO 2X/DAY TOPICALLY TO OUTER EARS WITH A Q-TIP OVER CRACKED AREA AS NEEDED
     Route: 061
  7. ATORVASTATIN [Concomitant]
     Active Substance: ATORVASTATIN
     Dosage: 80 MG, ONCE
     Route: 048
  8. HEPARIN DRIP IN DEXTROSE [Concomitant]
     Dosage: UNK UNK, AS DIRECTED
     Route: 042
  9. OXYBUTYNIN CHLORIDE. [Concomitant]
     Active Substance: OXYBUTYNIN CHLORIDE
     Dosage: 15 MG, 1X/DAY
     Route: 048
  10. NYSTATIN. [Concomitant]
     Active Substance: NYSTATIN
     Dosage: 1 DOSAGE UNITS, 2X/DAY
  11. DIPHENHYDRAMINE. [Concomitant]
     Active Substance: DIPHENHYDRAMINE
     Dosage: 1 DOSAGE UNITS, UP TO 6X/DAY; EVERY 4 HOURS AS NEEDED
  12. HEPARIN DRIP IN DEXTROSE [Concomitant]
     Dosage: UNK, UP TO 4X/DAY; SLIDING SCALE IV UNIT DOSE EVERY 6 HOURS AS NEEDED
     Route: 042
  13. CARBAMAZEPINE. [Concomitant]
     Active Substance: CARBAMAZEPINE
     Dosage: 400 MG, 1X/DAY IN THE MORNING
     Route: 048
  14. DOCUSATE  NA [Concomitant]
     Active Substance: DOCUSATE
     Dosage: 100 MG, 1X/DAY
     Route: 048
  15. ACETAMINOPHEN. [Concomitant]
     Active Substance: ACETAMINOPHEN
     Dosage: 650 MG, UP TO 4X/DAY (EVERY 6 HOURS AS NEEDED)
     Route: 048
  16. TRAZODONE HYDROCHLORIDE. [Concomitant]
     Active Substance: TRAZODONE HYDROCHLORIDE
     Dosage: 50 MG, 1X/DAY AT BEDTIME
     Route: 048
  17. SARNA LOTION [Concomitant]
     Dosage: UNK, UP TO 3X/DAY AS NEEDED
     Route: 061
  18. CARBAMAZEPINE. [Concomitant]
     Active Substance: CARBAMAZEPINE
     Dosage: 400 MG, 1X/DAY EVERY EVENING
  19. LIDOCAINE (QUALITEST) PATCH [Concomitant]
     Dosage: 5 %, 1X/DAY AT BEDTIME
     Route: 061
  20. NITROGLYCERIN. [Concomitant]
     Active Substance: NITROGLYCERIN
     Dosage: 1 DOSAGE UNITS, UP TO 6X/DAY (EVERY 4 HOURS AS NEEDED)
  21. POLYETHYLENE GLYCOL 3350. [Concomitant]
     Active Substance: POLYETHYLENE GLYCOL 3350
     Dosage: 17 G, AS NEEDED; EVERY 24 HOURS AS NEEDED
     Route: 048
  22. LEVETIRACETAM. [Concomitant]
     Active Substance: LEVETIRACETAM
     Dosage: 2000 MG, 2X/DAY
     Route: 048
  23. FERROUS SULFATE. [Concomitant]
     Active Substance: FERROUS SULFATE
     Dosage: 324 MG, EVERY 48 HOURS; EVERY OTHER DAY
     Route: 048
  24. CARBOXYMETHYLCELLULOSE [Concomitant]
     Active Substance: CARBOXYMETHYLCELLULOSE
     Dosage: 1 DROP, 4X/DAY
     Route: 047
  25. IBUPROFEN. [Concomitant]
     Active Substance: IBUPROFEN
     Dosage: 800 MG, UP TO 4X/DAY; EVERY 6 HOURS AS NEEDED
     Route: 048
  26. DIPHENHYDRAMINE. [Concomitant]
     Active Substance: DIPHENHYDRAMINE
     Dosage: 25 MG, UP TO 6X/DAY; EVERY 4 HOURS AS NEEDED
     Route: 042
  27. SIMVASTATIN. [Concomitant]
     Active Substance: SIMVASTATIN
     Dosage: 40 MG, 1X/DAY
     Route: 048
  28. POLYETHYLENE GLYCOL 3350. [Concomitant]
     Active Substance: POLYETHYLENE GLYCOL 3350
     Dosage: 17 G, 1X/DAY WITH EVENING MEAL
     Route: 048
  29. LORATADINE. [Concomitant]
     Active Substance: LORATADINE
     Dosage: 10 MG, 1X/DAY
     Route: 048
  30. LIORESAL [Suspect]
     Active Substance: BACLOFEN
     Indication: MUSCLE SPASTICITY
     Dosage: 732.5 ?G, \DAY
     Route: 037
     Dates: start: 20071030
  31. CARBAMAZEPINE. [Concomitant]
     Active Substance: CARBAMAZEPINE
     Dosage: 200 MG, 1X/DAY AT NOON
     Route: 048
  32. CHOLECALCIFEROL (D3-1,000UN) [Concomitant]
     Dosage: 25 ?G, 1X/DAY
     Route: 048
  33. ASCORBIC ACID. [Concomitant]
     Active Substance: ASCORBIC ACID
     Dosage: 500 MG, 2X/DAY
     Route: 048
  34. LUBRICATING OPH OINT [Concomitant]
     Dosage: 1 DOSAGE UNITS, 1X/DAY AT BEDTIME
     Route: 047
  35. PETROLATUM (WHITE) [Concomitant]
     Dosage: 1 DOSAGE UNITS, 2X/DAY
  36. CITRIC ACID/GLUCONO-LACTONE/DELTA-LACTON FOLEY IRRIGATION SOLUTION [Concomitant]
     Dosage: 1 DOSAGE UNITS, 1X/DAY; (INSTILL 30 CC-CLAMP FOLEY FOR 20 MINUTES THEN RELEASE CLAMP TO PREVENT FOLE
  37. CITRIC ACID/GLUCONO-LACTONE/DELTA-LACTON FOLEY IRRIGATION SOLUTION [Concomitant]
     Dosage: 1 DOSAGE UNITS, EVERY 48 HOURS; EVERY OTHER DAY
  38. CAMPHOR 0.5/MENTHOL LOTION 0.5% [Concomitant]
     Dosage: 1 DOSAGE UNITS, AS NEEDED

REACTIONS (19)
  - Muscle spasticity [Not Recovered/Not Resolved]
  - Thrombosis [Unknown]
  - Hypotension [Unknown]
  - Hordeolum [Recovering/Resolving]
  - Chalazion [Recovering/Resolving]
  - Urinary tract infection bacterial [Recovered/Resolved]
  - Osteomyelitis [Unknown]
  - Cerebral infarction [Not Recovered/Not Resolved]
  - Clostridium difficile infection [Recovered/Resolved]
  - Peripheral artery thrombosis [Recovered/Resolved]
  - Acute kidney injury [Unknown]
  - Device infusion issue [Not Recovered/Not Resolved]
  - Hypokalaemia [Recovering/Resolving]
  - Urosepsis [Recovered/Resolved]
  - Electrocardiogram ST segment elevation [Unknown]
  - Unresponsive to stimuli [Recovered/Resolved]
  - Epilepsy [Not Recovered/Not Resolved]
  - Nephrolithiasis [Recovered/Resolved]
  - Bradycardia [Unknown]

NARRATIVE: CASE EVENT DATE: 2012
